FAERS Safety Report 8462586-X (Version None)
Quarter: 2012Q2

REPORT INFORMATION
  Report Type: 
  Country: None (occurrence: None)
  Receive Date: 20120625
  Receipt Date: 20120319
  Transmission Date: 20120825
  Serious: No
  Sender: FDA-Public Use
  Company Number: US-BAUSCH-2012BL001964

PATIENT
  Age: 61 Year
  Sex: Male

DRUGS (2)
  1. BESIVANCE [Suspect]
     Route: 047
     Dates: start: 20120317, end: 20120318
  2. BESIVANCE [Suspect]
     Indication: EYE INFECTION
     Route: 047
     Dates: start: 20120315, end: 20120316

REACTIONS (2)
  - PHARYNGEAL OEDEMA [None]
  - SWOLLEN TONGUE [None]
